FAERS Safety Report 5018127-2 (Version None)
Quarter: 2006Q2

REPORT INFORMATION
  Report Type: 
  Country: None (occurrence: None)
  Receive Date: 20060530
  Receipt Date: 20050330
  Transmission Date: 20061013
  Serious: Yes (Other)
  Sender: FDA-Public Use
  Company Number: 2005022891

PATIENT
  Age: 70 Year
  Sex: Female

DRUGS (2)
  1. PREGABALIN (PREGABALIN) [Suspect]
     Indication: NEURALGIA
     Dosage: 150 MG (75 MG, 2 IN 1 D), ORAL
     Route: 048
     Dates: start: 20040916
  2. TRAMADOL HCL [Concomitant]

REACTIONS (1)
  - NEUTROPHIL COUNT DECREASED [None]
